FAERS Safety Report 13644407 (Version 1)
Quarter: 2017Q2

REPORT INFORMATION
  Report Type: Spontaneous
  Country: US (occurrence: US)
  Receive Date: 20170612
  Receipt Date: 20170612
  Transmission Date: 20170830
  Serious: No
  Sender: FDA-Public Use
  Company Number: US-ROCHE-1378809

PATIENT
  Sex: Female

DRUGS (1)
  1. XELODA [Suspect]
     Active Substance: CAPECITABINE
     Indication: PRODUCT USED FOR UNKNOWN INDICATION
     Dosage: X14 DAYS
     Route: 065
     Dates: end: 20140403

REACTIONS (3)
  - Nausea [Not Recovered/Not Resolved]
  - Eating disorder [Unknown]
  - Pain [Not Recovered/Not Resolved]
